FAERS Safety Report 6025074-6 (Version None)
Quarter: 2008Q4

REPORT INFORMATION
  Report Type: 
  Country: None (occurrence: None)
  Receive Date: 20081224
  Receipt Date: 20081112
  Transmission Date: 20090506
  Serious: Yes (Other)
  Sender: FDA-Public Use
  Company Number: 8038454

PATIENT
  Age: 36 Year
  Sex: Female

DRUGS (4)
  1. KEPPRA [Suspect]
     Indication: EPILEPSY
     Dosage: 1250 MG
     Dates: start: 20070101, end: 20080610
  2. KEPPRA [Suspect]
     Indication: EPILEPSY
     Dosage: 1750 MG
     Dates: start: 20080611, end: 20080805
  3. KEPPRA [Suspect]
     Indication: EPILEPSY
     Dosage: 2000 MG
     Dates: start: 20080806, end: 20080821
  4. KEPPRA [Suspect]
     Indication: EPILEPSY
     Dosage: 2500 MG
     Dates: start: 20080822

REACTIONS (4)
  - CAESAREAN SECTION [None]
  - DRUG EXPOSURE DURING PREGNANCY [None]
  - PREGNANCY [None]
  - VENOUS ANGIOMA OF BRAIN [None]
